FAERS Safety Report 8443152-9 (Version None)
Quarter: 2012Q2

REPORT INFORMATION
  Report Type: 
  Country: None (occurrence: None)
  Receive Date: 20120615
  Receipt Date: 20120612
  Transmission Date: 20120825
  Serious: Yes (Death, Hospitalization)
  Sender: FDA-Public Use
  Company Number: JP-ALLERGAN-1208352US

PATIENT
  Age: 48 Year
  Sex: Male

DRUGS (13)
  1. BOTOX [Suspect]
     Indication: SCOLIOSIS
     Dosage: 240 UNITS, SINGLE
     Route: 030
     Dates: start: 20120605, end: 20120605
  2. BOTOX [Suspect]
     Dosage: UNK
     Dates: start: 20061214, end: 20061214
  3. LANSOPRAZOLE [Concomitant]
     Route: 048
     Dates: end: 20120607
  4. LIORESAL [Suspect]
     Indication: MUSCLE SPASMS
     Route: 048
     Dates: end: 20120607
  5. NEUZYM [Concomitant]
     Indication: GASTRITIS PROPHYLAXIS
     Route: 048
     Dates: end: 20120607
  6. CEFAZOLIN SODIUM [Concomitant]
     Route: 048
     Dates: end: 20120607
  7. DANTRIUM [Suspect]
     Indication: MUSCLE SPASMS
     Route: 048
     Dates: end: 20120607
  8. MUCOSTA [Concomitant]
     Indication: GASTRITIS PROPHYLAXIS
     Route: 048
     Dates: end: 20120607
  9. MUCODYNE [Concomitant]
     Indication: RESPIRATORY FAILURE
     Route: 048
     Dates: end: 20120607
  10. GASMOTIN [Concomitant]
     Route: 048
     Dates: end: 20120607
  11. HOKUNALIN:TAPE [Concomitant]
     Indication: RESPIRATORY FAILURE
     Route: 061
     Dates: end: 20120607
  12. DIAZEPAM [Suspect]
     Indication: MUSCLE SPASMS
     Route: 048
     Dates: end: 20120607
  13. SENNOSIDE [Concomitant]
     Route: 048
     Dates: end: 20120607

REACTIONS (7)
  - DYSPNOEA [None]
  - RESPIRATORY FAILURE [None]
  - RESPIRATORY FATIGUE [None]
  - SPUTUM RETENTION [None]
  - HYPERCAPNIA [None]
  - ATELECTASIS [None]
  - VITAL CAPACITY DECREASED [None]
